FAERS Safety Report 8919941 (Version 1)
Quarter: 2012Q4

REPORT INFORMATION
  Report Type: 
  Country: DE (occurrence: DE)
  Receive Date: 20121121
  Receipt Date: 20121121
  Transmission Date: 20130627
  Serious: Yes (Hospitalization)
  Sender: FDA-Public Use
  Company Number: DE-AMGEN-DEUSP2012074017

PATIENT
  Sex: Female

DRUGS (2)
  1. VECTIBIX [Suspect]
     Indication: COLORECTAL CANCER METASTATIC
     Dosage: UNK
     Dates: start: 20120911
  2. FLUOROURACIL\IRINOTECAN [Suspect]
     Dosage: UNK
     Dates: start: 201207

REACTIONS (4)
  - Eating disorder [Unknown]
  - Weight decreased [Unknown]
  - Platelet count decreased [Unknown]
  - Diarrhoea [Unknown]
